FAERS Safety Report 10277886 (Version 3)
Quarter: 2015Q3

REPORT INFORMATION
  Report Type: Spontaneous
  Country: US (occurrence: US)
  Receive Date: 20140704
  Receipt Date: 20150803
  Transmission Date: 20151125
  Serious: Yes (Other)
  Sender: FDA-Public Use
  Company Number: US-JNJCP-30000226239

PATIENT
  Sex: Female

DRUGS (4)
  1. NEUTROGENA AGE SHIELD REPAIR ANTI AGING SUNBLOCK LOTION SPF 55 WITH [Suspect]
     Active Substance: AVOBENZONE\HOMOSALATE\OCTISALATE\OCTOCRYLENE
     Indication: PROPHYLAXIS
     Route: 061
  2. NEUTROGENA AGE SHIELD FACE SPF 70 [Suspect]
     Active Substance: AVOBENZONE\HOMOSALATE\OCTISALATE\OCTOCRYLENE\OXYBENZONE
     Indication: PROPHYLAXIS
     Route: 061
  3. NEUTROGENA AGE SHIELD  REPAIR ANTI-AGING SUNBLOCK LOTION SPF 55 WITH [Suspect]
     Active Substance: AVOBENZONE\HOMOSALATE\OCTISALATE\OCTOCRYLENE
     Indication: PROPHYLAXIS
     Route: 061
  4. NEUTROGENA AGE SHIELD FACE SPF 70 [Suspect]
     Active Substance: AVOBENZONE\HOMOSALATE\OCTISALATE\OCTOCRYLENE\OXYBENZONE
     Indication: PROPHYLAXIS
     Route: 061

REACTIONS (3)
  - Expired product administered [Unknown]
  - Malignant melanoma [Not Recovered/Not Resolved]
  - Product expiration date issue [Unknown]
